FAERS Safety Report 6818416-2 (Version None)
Quarter: 2010Q3

REPORT INFORMATION
  Report Type: 
  Country: None (occurrence: None)
  Receive Date: 20100706
  Receipt Date: 20080201
  Transmission Date: 20110219
  Serious: No
  Sender: FDA-Public Use
  Company Number: US-PFIZER INC-2007101763

PATIENT

DRUGS (2)
  1. ZITHROMAX (PED ORAL SUSP) [Suspect]
  2. PENICILLINE [Suspect]

REACTIONS (2)
  - HYPERSENSITIVITY [None]
  - RASH [None]
